FAERS Safety Report 12509698 (Version 2)
Quarter: 2016Q2

REPORT INFORMATION
  Report Type: Spontaneous
  Country: KR (occurrence: KR)
  Receive Date: 20160629
  Receipt Date: 20160629
  Transmission Date: 20160815
  Serious: Yes (Other)
  Sender: FDA-Public Use
  Company Number: KR-ACTAVIS-2016-13958

PATIENT
  Age: 42 Year
  Sex: Female

DRUGS (7)
  1. IRINOTECAN (UNKNOWN) [Suspect]
     Active Substance: IRINOTECAN
     Indication: RECTAL CANCER STAGE III
     Dosage: FOLFIRI
     Route: 065
  2. IFOSFAMIDE. [Suspect]
     Active Substance: IFOSFAMIDE
     Indication: RECTAL CANCER STAGE III
     Dosage: PALLIATIVE CHEMOTHERAPY
     Route: 065
  3. OXALIPLATIN (UNKNOWN) [Suspect]
     Active Substance: OXALIPLATIN
     Indication: RECTAL CANCER STAGE III
     Dosage: UNK, CYCLICAL
     Route: 065
  4. CAPECITABINE (UNKNOWN) [Suspect]
     Active Substance: CAPECITABINE
     Indication: RECTAL CANCER STAGE III
     Dosage: NEOADJUVANT CHEMOTHERAPY
     Route: 065
  5. CALCIUM FOLINATE [Suspect]
     Active Substance: LEUCOVORIN CALCIUM
     Indication: RECTAL CANCER STAGE III
     Dosage: FOLFOX
     Route: 065
  6. FLUOROURACIL. [Suspect]
     Active Substance: FLUOROURACIL
     Indication: RECTAL CANCER STAGE III
     Dosage: FOLFIRI, 5-FU
     Route: 065
  7. ETOPOSIDE (UNKNOWN) [Suspect]
     Active Substance: ETOPOSIDE
     Indication: RECTAL CANCER STAGE III
     Dosage: PALLIATIVE CHEMOTHERAPY
     Route: 065

REACTIONS (1)
  - Endometrial atrophy [Unknown]
